FAERS Safety Report 19145596 (Version 1)
Quarter: 2021Q2

REPORT INFORMATION
  Report Type: Other
  Country: IT (occurrence: IT)
  Receive Date: 20210416
  Receipt Date: 20210416
  Transmission Date: 20210717
  Serious: Yes (Other)
  Sender: FDA-Public Use
  Company Number: IT-ROCHE-2805764

PATIENT

DRUGS (3)
  1. PEMBROLIZUMAB. [Suspect]
     Active Substance: PEMBROLIZUMAB
     Indication: NON-SMALL CELL LUNG CANCER METASTATIC
     Route: 042
  2. ATEZOLIZUMAB. [Suspect]
     Active Substance: ATEZOLIZUMAB
     Indication: NON-SMALL CELL LUNG CANCER METASTATIC
     Route: 041
  3. NIVOLUMAB [Suspect]
     Active Substance: NIVOLUMAB
     Indication: NON-SMALL CELL LUNG CANCER METASTATIC
     Route: 042

REACTIONS (13)
  - Hypothyroidism [Unknown]
  - Dyspnoea [Unknown]
  - Diarrhoea [Unknown]
  - Arthritis [Unknown]
  - Hypersensitivity [Unknown]
  - Psoriasis [Unknown]
  - Dermatitis [Unknown]
  - Asthenia [Unknown]
  - Hepatitis [Unknown]
  - Pneumonitis [Unknown]
  - Hyperthyroidism [Unknown]
  - Bronchospasm [Unknown]
  - Vitiligo [Unknown]
